FAERS Safety Report 15977547 (Version 5)
Quarter: 2019Q2

REPORT INFORMATION
  Report Type: Spontaneous
  Country: US (occurrence: US)
  Receive Date: 20190218
  Receipt Date: 20190625
  Transmission Date: 20190711
  Serious: No
  Sender: FDA-Public Use
  Company Number: PHEH2019US007305

PATIENT
  Sex: Female
  Weight: 74.83 kg

DRUGS (1)
  1. ZOFRAN [Suspect]
     Active Substance: ONDANSETRON HYDROCHLORIDE
     Indication: MORNING SICKNESS
     Dosage: 4 MG, UNK
     Route: 048
     Dates: start: 20050611, end: 20050611

REACTIONS (10)
  - Injury [Unknown]
  - Sinusitis [Unknown]
  - Sinus congestion [Unknown]
  - Productive cough [Unknown]
  - Oropharyngeal pain [Unknown]
  - Ear pain [Unknown]
  - Pyrexia [Unknown]
  - Asthenia [Unknown]
  - Maternal exposure during pregnancy [Unknown]
  - Product use in unapproved indication [Unknown]
